FAERS Safety Report 7659170-4 (Version None)
Quarter: 2011Q3

REPORT INFORMATION
  Report Type: 
  Country: None (occurrence: None)
  Receive Date: 20110805
  Receipt Date: 20110727
  Transmission Date: 20111222
  Serious: Yes (Death, Hospitalization)
  Sender: FDA-Public Use
  Company Number: GB-GLAXOSMITHKLINE-B0737126A

PATIENT
  Sex: Male

DRUGS (48)
  1. ALLOPURINOL [Concomitant]
     Dates: start: 20090521, end: 20090718
  2. MORPHINE [Concomitant]
     Dates: start: 20090803, end: 20090803
  3. CODEINE LINCTUS [Concomitant]
     Dates: start: 20090617, end: 20090617
  4. GENTAMICIN [Concomitant]
     Dates: start: 20090713, end: 20090802
  5. PREDNISOLONE [Concomitant]
     Dates: start: 20090523, end: 20090711
  6. LANSOPRAZOLE [Concomitant]
     Dates: start: 20090524, end: 20090530
  7. VITAMIN K TAB [Concomitant]
     Dates: start: 20090716, end: 20090718
  8. AMBISOME [Concomitant]
     Dates: start: 20090802, end: 20090802
  9. CHLORAMBUCIL [Suspect]
     Indication: CHRONIC LYMPHOCYTIC LEUKAEMIA
     Dosage: 20MG PER DAY
     Route: 048
     Dates: start: 20090618
  10. ACTRAPID [Concomitant]
     Dates: start: 20090527, end: 20090529
  11. LIGNOCAINE 2% [Concomitant]
     Dates: start: 20090605, end: 20090605
  12. NEUPOGEN [Concomitant]
     Dates: start: 20090713, end: 20090802
  13. CALCIUM CARBONATE [Concomitant]
     Dates: start: 20090610, end: 20090802
  14. PIPERACILLIN AND TAZOBACTAM [Concomitant]
     Dates: start: 20090713, end: 20090802
  15. HYDROXOCOBALAMIN [Concomitant]
     Dates: start: 20090605, end: 20090802
  16. METFORMIN HCL [Concomitant]
     Dates: start: 20090501, end: 20090521
  17. RASBURICASE [Concomitant]
     Dates: start: 20090522, end: 20090522
  18. MIDAZOLAM HCL [Concomitant]
     Dates: start: 20090803, end: 20090803
  19. SANDO K [Concomitant]
     Dates: start: 20090522, end: 20090524
  20. ACETAMINOPHEN [Concomitant]
     Dates: start: 20090522, end: 20090731
  21. SIMVASTATIN [Concomitant]
     Dates: start: 19990101, end: 20090802
  22. FLUCONAZOLE [Concomitant]
     Dates: start: 20090603, end: 20090630
  23. ZOPICLONE [Concomitant]
     Dates: start: 20090606, end: 20090801
  24. WARFARIN SODIUM [Concomitant]
     Dates: start: 20000101, end: 20090523
  25. SLOW-K [Concomitant]
     Dates: start: 20090716, end: 20090802
  26. HYDROCORTISONE [Concomitant]
     Dates: start: 20090802, end: 20090802
  27. ISOSORBIDE MONONITRATE [Concomitant]
     Dates: end: 20090523
  28. ESCITALOPRAM [Concomitant]
     Dates: start: 20090728, end: 20090802
  29. FORTISIP [Concomitant]
     Dates: start: 20090527, end: 20090802
  30. FUROSEMIDE [Concomitant]
     Dates: start: 20090522, end: 20090525
  31. ACTRAPID [Concomitant]
     Dates: start: 20090609, end: 20090619
  32. TEMAZEPAM [Concomitant]
  33. DILTIAZEM [Concomitant]
     Dates: start: 19990101, end: 20090529
  34. ASPIRIN [Concomitant]
     Dates: start: 20000101, end: 20090606
  35. CLARITHROMYCIN [Concomitant]
     Dates: start: 20090612, end: 20090621
  36. SODIUM BICARBONATE EAR DROPS [Concomitant]
     Dates: start: 20090522, end: 20090528
  37. OMEPRAZOLE [Concomitant]
     Dates: start: 20090603, end: 20090703
  38. FOLIC ACID [Concomitant]
     Dates: start: 20090715, end: 20090802
  39. ENOXAPARIN SODIUM [Concomitant]
     Dates: start: 20090524, end: 20090525
  40. METOCLOPRAMIDE [Concomitant]
     Dates: start: 20090620, end: 20090620
  41. MABTHERA [Suspect]
     Indication: CHRONIC LYMPHOCYTIC LEUKAEMIA
     Route: 042
     Dates: start: 20090618
  42. SENNA [Concomitant]
     Dates: start: 20090606, end: 20090802
  43. LISINOPRIL [Concomitant]
     Dates: start: 19990101, end: 20090523
  44. LANTUS [Concomitant]
     Dates: start: 20090527, end: 20090529
  45. COTRIM [Concomitant]
     Dates: start: 20090523, end: 20090603
  46. PIPERACILLIN AND TAZOBACTAM [Concomitant]
     Dates: start: 20090521, end: 20090615
  47. DEXAMETHASONE [Concomitant]
     Dates: start: 20090613, end: 20090615
  48. CODEINE SULFATE [Concomitant]
     Dates: start: 20090522, end: 20090523

REACTIONS (1)
  - NEUTROPENIC SEPSIS [None]
